FAERS Safety Report 8312498-7 (Version None)
Quarter: 2012Q2

REPORT INFORMATION
  Report Type: 
  Country: None (occurrence: None)
  Receive Date: 20120425
  Receipt Date: 20120420
  Transmission Date: 20120825
  Serious: Yes (Hospitalization, Disabling, Other)
  Sender: FDA-Public Use
  Company Number: CA-MERCK-1108USA02801

PATIENT
  Age: 53 Year
  Sex: Female
  Weight: 109 kg

DRUGS (9)
  1. FOSAMAX [Suspect]
     Indication: OSTEOPOROSIS
     Route: 048
     Dates: start: 19951101, end: 20010101
  2. BONIVA [Suspect]
     Indication: OSTEOPOROSIS
     Route: 048
     Dates: start: 20061001, end: 20090901
  3. VITAMINS (UNSPECIFIED) [Concomitant]
     Route: 065
     Dates: start: 19950101
  4. OMEPRAZOLE [Concomitant]
     Route: 065
     Dates: start: 19940101
  5. BORON (UNSPECIFIED) [Concomitant]
     Route: 065
     Dates: start: 19950101
  6. FOSAMAX [Suspect]
     Route: 048
     Dates: start: 20010101, end: 20061001
  7. FOSAMAX [Suspect]
     Route: 048
     Dates: start: 19960101, end: 20021101
  8. MAGNESIUM (UNSPECIFIED) [Concomitant]
     Route: 065
     Dates: start: 19950101
  9. PRILOSEC [Concomitant]
     Route: 065
     Dates: start: 19940101

REACTIONS (22)
  - SQUAMOUS CELL CARCINOMA OF SKIN [None]
  - HYDRONEPHROSIS [None]
  - CALCULUS URETERIC [None]
  - LOW TURNOVER OSTEOPATHY [None]
  - ADVERSE EVENT [None]
  - EMPHYSEMA [None]
  - ASTHMA [None]
  - NEPHROLITHIASIS [None]
  - CHOLELITHIASIS [None]
  - OSTEOPENIA [None]
  - HYPERTENSION [None]
  - FALL [None]
  - VITAMIN D DEFICIENCY [None]
  - FRACTURE DELAYED UNION [None]
  - CHRONIC OBSTRUCTIVE PULMONARY DISEASE [None]
  - FEMUR FRACTURE [None]
  - BASAL CELL CARCINOMA [None]
  - BRONCHITIS CHRONIC [None]
  - HYPOTHYROIDISM [None]
  - OVARIAN DISORDER [None]
  - ARTHRITIS [None]
  - OSTEOARTHRITIS [None]
